FAERS Safety Report 5344166-8 (Version None)
Quarter: 2007Q2

REPORT INFORMATION
  Report Type: 
  Country: None (occurrence: None)
  Receive Date: 20070531
  Receipt Date: 20070531
  Transmission Date: 20071010
  Serious: Yes (Hospitalization)
  Sender: FDA-Public Use
  Company Number: None

PATIENT
  Sex: Female
  Weight: 72.8 kg

DRUGS (4)
  1. BEVACIZUMAB (RHUMAB VEGF) [Suspect]
     Dosage: 1445 MG
     Dates: end: 20070514
  2. LEUCOVORIN CALCIUM [Suspect]
     Dosage: 2204 MG
     Dates: end: 20070514
  3. ELOXATIN [Suspect]
     Dosage: 438 MG
     Dates: end: 20070514
  4. FLUOROURACIL [Suspect]
     Dosage: 12708 MG
     Dates: end: 20070514

REACTIONS (1)
  - PULMONARY EMBOLISM [None]
